FAERS Safety Report 22976222 (Version 2)
Quarter: 2023Q4

REPORT INFORMATION
  Report Type: Report from Study
  Country: CA (occurrence: CA)
  Receive Date: 20230925
  Receipt Date: 20231018
  Transmission Date: 20240110
  Serious: No
  Sender: FDA-Public Use
  Company Number: CA-BAYER-2023A130751

PATIENT
  Sex: Male

DRUGS (2)
  1. EYLEA [Suspect]
     Active Substance: AFLIBERCEPT
     Indication: Diabetic retinal oedema
     Dosage: UNK, SOLUTION FOR INJECTION, 40 MG/ML
     Dates: start: 201912
  2. EYLEA [Suspect]
     Active Substance: AFLIBERCEPT
     Indication: Diabetic retinopathy

REACTIONS (1)
  - Off label use [Not Recovered/Not Resolved]
